FAERS Safety Report 18430523 (Version 6)
Quarter: 2021Q1

REPORT INFORMATION
  Report Type: Spontaneous
  Country: JP (occurrence: JP)
  Receive Date: 20201027
  Receipt Date: 20210331
  Transmission Date: 20210419
  Serious: Yes (Other)
  Sender: FDA-Public Use
  Company Number: NVSJ2020JP010798

PATIENT
  Age: 76 Year
  Sex: Female
  Weight: 42.9 kg

DRUGS (7)
  1. TAFINLAR [Suspect]
     Active Substance: DABRAFENIB MESYLATE
     Dosage: 200 MG
     Route: 048
     Dates: start: 20201028, end: 20201112
  2. TAFINLAR [Suspect]
     Active Substance: DABRAFENIB MESYLATE
     Indication: LUNG NEOPLASM MALIGNANT
     Dosage: 300 MG
     Route: 048
     Dates: start: 20201013, end: 20201019
  3. MEKINIST [Suspect]
     Active Substance: TRAMETINIB DIMETHYL SULFOXIDE
     Dosage: 2 MG
     Route: 048
     Dates: start: 20201028, end: 20201112
  4. NAIXAN [Suspect]
     Active Substance: NAPROXEN SODIUM
     Indication: PYREXIA
     Dosage: 300 MG
     Route: 048
     Dates: start: 20201105, end: 20201112
  5. MEKINIST [Suspect]
     Active Substance: TRAMETINIB DIMETHYL SULFOXIDE
     Indication: LUNG NEOPLASM MALIGNANT
     Dosage: 2 MG
     Route: 048
     Dates: start: 20201013, end: 20201019
  6. TAGRISSO [Concomitant]
     Active Substance: OSIMERTINIB
     Indication: LUNG NEOPLASM MALIGNANT
     Dosage: UNK
     Route: 048
     Dates: start: 20201028
  7. HEPARIN SODIUM. [Suspect]
     Active Substance: HEPARIN SODIUM
     Indication: DEEP VEIN THROMBOSIS
     Dosage: 8000 IU
     Route: 041
     Dates: start: 20201106, end: 20201112

REACTIONS (11)
  - Altered state of consciousness [Recovered/Resolved]
  - Gastric ulcer [Unknown]
  - Pyrexia [Recovered/Resolved]
  - Gastrointestinal haemorrhage [Recovered/Resolved]
  - Pyrexia [Unknown]
  - Haemoglobin decreased [Unknown]
  - Deep vein thrombosis [Unknown]
  - Melaena [Unknown]
  - Hyponatraemia [Recovered/Resolved]
  - Urinary tract infection [Recovered/Resolved]
  - Malaise [Unknown]

NARRATIVE: CASE EVENT DATE: 20201015
